FAERS Safety Report 16769829 (Version 2)
Quarter: 2019Q3

REPORT INFORMATION
  Report Type: Report from Study
  Country: JP (occurrence: JP)
  Receive Date: 20190904
  Receipt Date: 20190910
  Transmission Date: 20191005
  Serious: Yes (Hospitalization)
  Sender: FDA-Public Use
  Company Number: JP-ROCHE-2395778

PATIENT
  Age: 75 Year
  Sex: Female
  Weight: 49 kg

DRUGS (12)
  1. BEVACIZUMAB. [Suspect]
     Active Substance: BEVACIZUMAB
     Indication: NON-SMALL CELL LUNG CANCER
     Dosage: MOST RECENT DOSE OF BEVACIZUMAB ON 08/AUG/2019
     Route: 042
     Dates: start: 20190806
  2. FML [Concomitant]
     Active Substance: FLUOROMETHOLONE
     Indication: GLAUCOMA
     Dosage: DAY OF BEGINNING OF DOSAGE FOR PROPER QUANTITY/TIME AND TON: INVESTIGATIONAL ?AGENT ADMINISTERING FO
     Route: 047
  3. OFTECTOR [Concomitant]
     Active Substance: OFLOXACIN
     Indication: GLAUCOMA
     Dosage: DAY OF BEGINNING OF DOSAGE FOR PROPER QUANTITY/TIME AND TON: INVESTIGATIONAL ?AGENT ADMINISTERING FO
     Route: 047
  4. MAGNESIUM OXIDE. [Concomitant]
     Active Substance: MAGNESIUM OXIDE
     Indication: CONSTIPATION
     Route: 048
     Dates: start: 20190814
  5. CARBOPLATIN. [Suspect]
     Active Substance: CARBOPLATIN
     Indication: NON-SMALL CELL LUNG CANCER
     Route: 042
     Dates: start: 20190808
  6. ALIMTA [Suspect]
     Active Substance: PEMETREXED DISODIUM
     Indication: NON-SMALL CELL LUNG CANCER
     Route: 042
     Dates: start: 20190808
  7. TIMOLOL MALEATE. [Concomitant]
     Active Substance: TIMOLOL MALEATE
     Indication: GLAUCOMA
     Route: 047
     Dates: start: 20190814
  8. ATEZOLIZUMAB. [Suspect]
     Active Substance: ATEZOLIZUMAB
     Indication: NON-SMALL CELL LUNG CANCER
     Route: 041
     Dates: start: 20190808
  9. TEARBALANCE [Concomitant]
     Active Substance: HYALURONATE SODIUM
     Indication: GLAUCOMA
     Dosage: DAY OF BEGINNING OF DOSAGE FOR PROPER QUANTITY/TIME AND TON: INVESTIGATIONAL ?AGENT ADMINISTERING FO
     Route: 047
  10. LOCOID [Concomitant]
     Active Substance: HYDROCORTISONE BUTYRATE
     Indication: DERMATITIS ACNEIFORM
     Dosage: PROPER QUANTITY/TIME
     Route: 061
     Dates: start: 20190809
  11. METHYCOBAL [Concomitant]
     Active Substance: METHYLCOBALAMIN
     Indication: PROPHYLAXIS
     Dosage: BEGINNING OF DOSAGE DAY: INVESTIGATIONAL AGENT ADMINISTERING FORMER
     Route: 048
  12. CALONAL [Concomitant]
     Active Substance: ACETAMINOPHEN
     Indication: PYREXIA
     Dosage: SINGLE USE
     Route: 048
     Dates: start: 20190818

REACTIONS (2)
  - Immunisation reaction [Not Recovered/Not Resolved]
  - Immune-mediated adverse reaction [Not Recovered/Not Resolved]

NARRATIVE: CASE EVENT DATE: 20190816
